FAERS Safety Report 20244879 (Version 2)
Quarter: 2022Q4

REPORT INFORMATION
  Report Type: Spontaneous
  Country: US (occurrence: US)
  Receive Date: 20211229
  Receipt Date: 20221220
  Transmission Date: 20230112
  Serious: No
  Sender: FDA-Public Use
  Company Number: US-CELLTRION INC.-2021US015494

PATIENT

DRUGS (6)
  1. TRUXIMA [Suspect]
     Active Substance: RITUXIMAB-ABBS
     Indication: Systemic lupus erythematosus
     Dosage: 1000 MG EVERY 2 WEEKS X 2 (10 MG/ML)
     Route: 065
     Dates: start: 20211028
  2. TRUXIMA [Suspect]
     Active Substance: RITUXIMAB-ABBS
     Indication: Glomerular vascular disorder
     Dosage: 1000 MG, EVERY 2 WEEKS
     Route: 065
     Dates: start: 20211111
  3. FUROSEMIDE [Concomitant]
     Active Substance: FUROSEMIDE
  4. SODIUM BICARBONATE [Concomitant]
     Active Substance: SODIUM BICARBONATE
  5. PREDNISONE [Concomitant]
     Active Substance: PREDNISONE
  6. CARVEDILOL [Concomitant]
     Active Substance: CARVEDILOL

REACTIONS (1)
  - Off label use [Unknown]

NARRATIVE: CASE EVENT DATE: 20211111
